FAERS Safety Report 22095281 (Version 1)
Quarter: 2023Q1

REPORT INFORMATION
  Report Type: Spontaneous
  Country: US (occurrence: US)
  Receive Date: 20230314
  Receipt Date: 20230314
  Transmission Date: 20230418
  Serious: No
  Sender: FDA-Public Use
  Company Number: US-Dermavant-000405

PATIENT
  Age: 64 Year
  Sex: Female

DRUGS (5)
  1. TAPINAROF [Suspect]
     Active Substance: TAPINAROF
     Indication: Psoriasis
     Route: 061
     Dates: start: 202212
  2. NEXIUM [Concomitant]
     Active Substance: ESOMEPRAZOLE MAGNESIUM
  3. VITAMIN B [Concomitant]
     Active Substance: VITAMIN B
  4. VITAMIN D [Concomitant]
     Active Substance: VITAMIN D NOS
  5. HERBALS\WITHANIA SOMNIFERA ROOT [Suspect]
     Active Substance: HERBALS\WITHANIA SOMNIFERA ROOT
     Dates: start: 202301, end: 20230201

REACTIONS (2)
  - Application site dryness [Not Recovered/Not Resolved]
  - Pruritus [Not Recovered/Not Resolved]

NARRATIVE: CASE EVENT DATE: 20221201
